FAERS Safety Report 7292908-7 (Version None)
Quarter: 2011Q1

REPORT INFORMATION
  Report Type: 
  Country: None (occurrence: None)
  Receive Date: 20110209
  Receipt Date: 20110209
  Transmission Date: 20110831
  Serious: Yes (Other)
  Sender: FDA-Public Use
  Company Number: None

PATIENT
  Age: 47 Year
  Sex: Male
  Weight: 86.1834 kg

DRUGS (1)
  1. SUBOXONE [Suspect]
     Indication: DRUG DEPENDENCE
     Dosage: 2MG/0.5 3 STRIPS DAILY SL
     Route: 060
     Dates: start: 20101110, end: 20110207

REACTIONS (4)
  - HYPERHIDROSIS [None]
  - DIZZINESS [None]
  - TONGUE BLISTERING [None]
  - HYPOAESTHESIA ORAL [None]
